FAERS Safety Report 8306571-7 (Version None)
Quarter: 2012Q2

REPORT INFORMATION
  Report Type: 
  Country: None (occurrence: None)
  Receive Date: 20120420
  Receipt Date: 20120420
  Transmission Date: 20120825
  Serious: Yes (Death)
  Sender: FDA-Public Use
  Company Number: None

PATIENT
  Age: 67 Year
  Sex: Female

DRUGS (5)
  1. DEXAMETHASONE [Concomitant]
  2. ZYRTEC [Concomitant]
  3. MEGACE [Concomitant]
  4. REVLIMID [Suspect]
     Indication: MULTIPLE MYELOMA
     Dosage: 25MG DAILY ORALLY
     Route: 048
     Dates: start: 20100801, end: 20101001
  5. ASPIRIN [Concomitant]

REACTIONS (2)
  - SEPSIS [None]
  - RASH [None]
